FAERS Safety Report 19999858 (Version 2)
Quarter: 2021Q4

REPORT INFORMATION
  Report Type: Other
  Country: US (occurrence: None)
  Receive Date: 20211026
  Receipt Date: 20211128
  Transmission Date: 20220303
  Serious: Yes (Other)
  Sender: FDA-Public Use
  Company Number: US-ROCHE-2940866

PATIENT
  Sex: Male

DRUGS (16)
  1. ESBRIET [Suspect]
     Active Substance: PIRFENIDONE
     Indication: Interstitial lung disease
     Dosage: TAKE 3 TABLET(S) BY MOUTH 3 TIMES A DAY
     Route: 048
  2. ASPIRIN [Concomitant]
     Active Substance: ASPIRIN
     Route: 048
     Dates: start: 20200506
  3. CILOSTAZOL [Concomitant]
     Active Substance: CILOSTAZOL
     Route: 048
     Dates: start: 20210317
  4. FAMOTIDINE [Concomitant]
     Active Substance: FAMOTIDINE
     Route: 048
     Dates: start: 20210302
  5. FINASTERIDE [Concomitant]
     Active Substance: FINASTERIDE
     Route: 048
     Dates: start: 20210202
  6. LATANOPROST [Concomitant]
     Active Substance: LATANOPROST
     Dates: start: 20210225
  7. METOPROLOL TARTRATE [Concomitant]
     Active Substance: METOPROLOL TARTRATE
     Route: 048
     Dates: start: 20210330
  8. METOPROLOL TARTRATE [Concomitant]
     Active Substance: METOPROLOL TARTRATE
     Route: 048
     Dates: start: 20210325
  9. MIDODRINE [Concomitant]
     Active Substance: MIDODRINE
     Dates: start: 20210217
  10. PRAMIPEXOLE [Concomitant]
     Active Substance: PRAMIPEXOLE
     Route: 048
     Dates: start: 20210312
  11. PRAVASTATIN [Concomitant]
     Active Substance: PRAVASTATIN
     Dates: start: 20210427
  12. PREDNISONE [Concomitant]
     Active Substance: PREDNISONE
     Route: 048
     Dates: start: 20210326
  13. TAMSULOSIN [Concomitant]
     Active Substance: TAMSULOSIN
     Route: 048
     Dates: start: 20210318
  14. TIMOLOL MALEATE [Concomitant]
     Active Substance: TIMOLOL MALEATE
     Dates: start: 20210402
  15. TRAMADOL [Concomitant]
     Active Substance: TRAMADOL
     Dates: start: 20210401
  16. WARFARIN [Concomitant]
     Active Substance: WARFARIN
     Dates: start: 20210310

REACTIONS (1)
  - Pneumonia [Unknown]
